FAERS Safety Report 7717854-3 (Version None)
Quarter: 2011Q3

REPORT INFORMATION
  Report Type: 
  Country: None (occurrence: None)
  Receive Date: 20110830
  Receipt Date: 20110817
  Transmission Date: 20111222
  Serious: Yes (Hospitalization)
  Sender: FDA-Public Use
  Company Number: BR-PFIZER INC-2011199484

PATIENT

DRUGS (1)
  1. PROPRANOLOL HCL [Suspect]
     Dosage: UNKNOWN
     Route: 048

REACTIONS (2)
  - ACCIDENTAL EXPOSURE [None]
  - UNEVALUABLE EVENT [None]
